FAERS Safety Report 7137940-9 (Version None)
Quarter: 2010Q4

REPORT INFORMATION
  Report Type: 
  Country: None (occurrence: None)
  Receive Date: 20101103
  Receipt Date: 20100426
  Transmission Date: 20110411
  Serious: Yes (Other)
  Sender: FDA-Public Use
  Company Number: US-WYE-H14837310

PATIENT
  Age: 28 Year
  Sex: Female
  Weight: 65.83 kg

DRUGS (10)
  1. EFFEXOR XR [Suspect]
     Indication: ANXIETY
     Dosage: 75 MG 1X PER 1 DAY ; 150 MG 1X PER 1 DAY
     Dates: end: 20100401
  2. EFFEXOR XR [Suspect]
     Indication: DEPRESSION
     Dosage: 75 MG 1X PER 1 DAY ; 150 MG 1X PER 1 DAY
     Dates: end: 20100401
  3. EFFEXOR XR [Suspect]
     Indication: ANXIETY
     Dosage: 75 MG 1X PER 1 DAY ; 150 MG 1X PER 1 DAY
     Dates: start: 20000101
  4. EFFEXOR XR [Suspect]
     Indication: DEPRESSION
     Dosage: 75 MG 1X PER 1 DAY ; 150 MG 1X PER 1 DAY
     Dates: start: 20000101
  5. EFFEXOR XR [Suspect]
     Indication: ANXIETY
     Dosage: 75 MG 1X PER 1 DAY ; 150 MG 1X PER 1 DAY
     Dates: start: 20100101
  6. EFFEXOR XR [Suspect]
     Indication: DEPRESSION
     Dosage: 75 MG 1X PER 1 DAY ; 150 MG 1X PER 1 DAY
     Dates: start: 20100101
  7. ADVAIR (FLUTICASONE PROPIONATE/SALMETEREOL XINAFOATE) [Concomitant]
  8. ALBUTEROL [Concomitant]
  9. SINGULAIR [Concomitant]
  10. FLEXERIL [Concomitant]

REACTIONS (8)
  - AGGRESSION [None]
  - ANXIETY [None]
  - CONDITION AGGRAVATED [None]
  - DEPRESSION [None]
  - DIZZINESS [None]
  - DRUG WITHDRAWAL SYNDROME [None]
  - MOOD SWINGS [None]
  - NAUSEA [None]
